FAERS Safety Report 25871426 (Version 1)
Quarter: 2025Q4

REPORT INFORMATION
  Report Type: Spontaneous
  Country: AU (occurrence: AU)
  Receive Date: 20251001
  Receipt Date: 20251001
  Transmission Date: 20260117
  Serious: Yes (Hospitalization, Other)
  Sender: DAITO PHARMACEUTICALS
  Company Number: AU-Daito Pharmaceutical Co., Ltd.-2185722

PATIENT
  Age: 67 Year
  Sex: Male

DRUGS (3)
  1. METHOTREXATE SODIUM [Suspect]
     Active Substance: METHOTREXATE SODIUM
     Indication: Cardiac sarcoidosis
  2. METHOTREXATE SODIUM [Suspect]
     Active Substance: METHOTREXATE SODIUM
     Indication: Product use in unapproved indication
  3. AMIODARONE [Concomitant]
     Active Substance: AMIODARONE

REACTIONS (3)
  - Sepsis [Unknown]
  - Product use in unapproved indication [Unknown]
  - Enterovesical fistula [Unknown]
